FAERS Safety Report 13275822 (Version 1)
Quarter: 2017Q1

REPORT INFORMATION
  Report Type: Spontaneous
  Country: US (occurrence: US)
  Receive Date: 20170228
  Receipt Date: 20170228
  Transmission Date: 20170428
  Serious: No
  Sender: FDA-Public Use
  Company Number: US-ELI_LILLY_AND_COMPANY-US201702007288

PATIENT
  Age: 45 Year
  Sex: Female

DRUGS (2)
  1. CYMBALTA [Suspect]
     Active Substance: DULOXETINE HYDROCHLORIDE
     Indication: DEPRESSION
     Dosage: UNK, UNKNOWN
     Route: 065
     Dates: start: 2015
  2. DULOXETINE HYDROCHLORIDE. [Suspect]
     Active Substance: DULOXETINE HYDROCHLORIDE
     Indication: DEPRESSION
     Dosage: 20 MG, UNKNOWN
     Route: 065

REACTIONS (8)
  - Nausea [Not Recovered/Not Resolved]
  - Gastrointestinal pain [Not Recovered/Not Resolved]
  - Ear discomfort [Not Recovered/Not Resolved]
  - Paraesthesia [Not Recovered/Not Resolved]
  - Abdominal discomfort [Not Recovered/Not Resolved]
  - Drug withdrawal headache [Not Recovered/Not Resolved]
  - Hot flush [Not Recovered/Not Resolved]
  - Withdrawal syndrome [Not Recovered/Not Resolved]

NARRATIVE: CASE EVENT DATE: 201701
